FAERS Safety Report 23999692 (Version 1)
Quarter: 2024Q2

REPORT INFORMATION
  Report Type: Spontaneous
  Country: CA (occurrence: CA)
  Receive Date: 20240621
  Receipt Date: 20240621
  Transmission Date: 20240716
  Serious: Yes (Death, Other)
  Sender: FDA-Public Use
  Company Number: None

PATIENT
  Age: 43 Year
  Sex: Female
  Weight: 96 kg

DRUGS (113)
  1. AZELAIC ACID [Suspect]
     Active Substance: AZELAIC ACID
     Indication: Product used for unknown indication
     Dosage: DOSE, FREQUENCY, THERAPY DURATION: ASKED BUT UNKNOWN
  2. TRAMADOL HYDROCHLORIDE [Suspect]
     Active Substance: TRAMADOL HYDROCHLORIDE
     Indication: Product used for unknown indication
     Dosage: DOSE FREQUENCY THERAPY DURATION: ASKED BUT UNKNOWN
  3. AIMOVIG [Suspect]
     Active Substance: ERENUMAB-AOOE
     Indication: Rheumatoid arthritis
     Dosage: DOSE FREQUENCY THERAPY DURATION: ASKED BUT UNKNOWN
  4. AIMOVIG [Suspect]
     Active Substance: ERENUMAB-AOOE
     Indication: Migraine
     Dosage: DOSE FREQUENCY THERAPY DURATION: ASKED BUT UNKNOWN
  5. SULFASALAZINE [Suspect]
     Active Substance: SULFASALAZINE
     Indication: Rheumatoid arthritis
     Dosage: 2 DOSAGE FORM
  6. SULFASALAZINE [Suspect]
     Active Substance: SULFASALAZINE
     Indication: Rheumatoid arthritis
     Dosage: 1 DOSAGE FORM
     Route: 048
  7. SULFASALAZINE [Suspect]
     Active Substance: SULFASALAZINE
     Indication: Rheumatoid arthritis
     Route: 048
  8. SULFASALAZINE [Suspect]
     Active Substance: SULFASALAZINE
     Indication: Rheumatoid arthritis
     Route: 048
  9. SULFASALAZINE [Suspect]
     Active Substance: SULFASALAZINE
     Indication: Rheumatoid arthritis
     Route: 048
  10. SULFASALAZINE [Suspect]
     Active Substance: SULFASALAZINE
     Indication: Rheumatoid arthritis
     Route: 048
  11. SULFASALAZINE [Suspect]
     Active Substance: SULFASALAZINE
     Indication: Rheumatoid arthritis
     Route: 048
  12. CANDESARTAN [Suspect]
     Active Substance: CANDESARTAN
     Indication: Rheumatoid arthritis
     Dosage: DOSE FREQUENCY THERAPY DURATION: ASKED BUT UNKNOWN
  13. CANDESARTAN [Suspect]
     Active Substance: CANDESARTAN
     Indication: Migraine
     Dosage: DOSE FREQUENCY THERAPY DURATION: ASKED BUT UNKNOWN
  14. INFLIXIMAB [Suspect]
     Active Substance: INFLIXIMAB
     Indication: Rheumatoid arthritis
     Route: 042
  15. KEVZARA [Suspect]
     Active Substance: SARILUMAB
     Indication: Rheumatoid arthritis
     Dosage: DOSE FREQUENCY THERAPY DURATION: ASKED BUT UNKNOWN
  16. NUCALA [Suspect]
     Active Substance: MEPOLIZUMAB
     Indication: Product used for unknown indication
  17. PSEUDOEPHEDRINE HYDROCHLORIDE [Suspect]
     Active Substance: PSEUDOEPHEDRINE HYDROCHLORIDE
     Indication: Rheumatoid arthritis
  18. PSEUDOEPHEDRINE HYDROCHLORIDE [Suspect]
     Active Substance: PSEUDOEPHEDRINE HYDROCHLORIDE
     Indication: Rheumatoid arthritis
  19. PSEUDOEPHEDRINE HYDROCHLORIDE [Suspect]
     Active Substance: PSEUDOEPHEDRINE HYDROCHLORIDE
     Indication: Rheumatoid arthritis
  20. PHOSPHORUS [Suspect]
     Active Substance: PHOSPHORUS
     Indication: Product used for unknown indication
  21. CETIRIZINE [Suspect]
     Active Substance: CETIRIZINE HYDROCHLORIDE
     Indication: Rheumatoid arthritis
     Dosage: FREQUENCY THERAPY DURATION: ASKED BUT UNKNOWN
     Route: 048
  22. CETIRIZINE [Suspect]
     Active Substance: CETIRIZINE HYDROCHLORIDE
     Indication: Rheumatoid arthritis
     Dosage: FREQUENCY THERAPY DURATION: ASKED BUT UNKNOWN
     Route: 048
  23. COSENTYX [Suspect]
     Active Substance: SECUKINUMAB
     Indication: Psoriasis
     Dosage: DOSE FREQUENCY THERAPY DURATION: ASKED BUT UNKNOWN
  24. COSENTYX [Suspect]
     Active Substance: SECUKINUMAB
     Indication: Arthropathy
     Dosage: DOSE FREQUENCY THERAPY DURATION: ASKED BUT UNKNOWN
  25. FLUMETHASONE PIVALATE [Suspect]
     Active Substance: FLUMETHASONE PIVALATE
     Indication: Product used for unknown indication
     Dosage: DOSE FREQUENCY THERAPY DURATION: ASKED BUT UNKNOWN
     Route: 048
  26. FLUMETHASONE PIVALATE [Suspect]
     Active Substance: FLUMETHASONE PIVALATE
     Indication: Product used for unknown indication
     Dosage: DOSE FREQUENCY THERAPY DURATION: ASKED BUT UNKNOWN
  27. FOSAMAX [Suspect]
     Active Substance: ALENDRONATE SODIUM
     Indication: Rheumatoid arthritis
     Dosage: DOSE FREQUENCY THERAPY DURATION: ASKED BUT UNKNOWN
  28. GOLD SODIUM THIOMALATE [Suspect]
     Active Substance: GOLD SODIUM THIOMALATE
     Indication: Product used for unknown indication
     Dosage: DOSE FREQUENCY THERAPY DURATION: ASKED BUT UNKNOWN
  29. BETAMETHASONE [Suspect]
     Active Substance: BETAMETHASONE\BETAMETHASONE DIPROPIONATE
     Indication: Product used for unknown indication
     Dosage: DOSAGE FORM, ROUTE OF ADMINISTRATION, DOSE, FREQUENCY, THERAPY DURATION: ASKED BUT UNKNOWN
  30. BETAMETHASONE [Suspect]
     Active Substance: BETAMETHASONE\BETAMETHASONE DIPROPIONATE
     Indication: Product used for unknown indication
     Dosage: DOSE FREQUENCY THERAPY DURATION: ASKED BUT UNKNOWN
  31. ACETAMINOPHEN AND CODEINE [Suspect]
     Active Substance: ACETAMINOPHEN\CODEINE PHOSPHATE
     Indication: Rheumatoid arthritis
     Dosage: DOSE, FREQUENCY, THERAPY DURATION: ASKED BUT UNKNOWN
  32. ACETAMINOPHEN AND CODEINE [Suspect]
     Active Substance: ACETAMINOPHEN\CODEINE PHOSPHATE
     Indication: Rheumatoid arthritis
     Dosage: DOSE, FREQUENCY, THERAPY DURATION: ASKED BUT UNKNOWN
  33. TRAZODONE [Suspect]
     Active Substance: TRAZODONE HYDROCHLORIDE
     Indication: Product used for unknown indication
     Dosage: 1 DOSAGE FORM
  34. CORTISONE ACETATE [Concomitant]
     Active Substance: CORTISONE ACETATE
     Indication: Rheumatoid arthritis
     Dosage: FREQUENCY THERAPY DURATION: ASKED BUT UNKNOWN
  35. BERINERT [Suspect]
     Active Substance: HUMAN C1-ESTERASE INHIBITOR
     Indication: Product used for unknown indication
     Dosage: DOSAGE FORM, ROUTE OF ADMINISTRATION, DOSE, FREQUENCY, THERAPY DURATION: ASKED BUT UNKNOWN
  36. HYDROXYCHLOROQUINE [Suspect]
     Active Substance: HYDROXYCHLOROQUINE
     Indication: Rheumatoid arthritis
     Dosage: THERAPY DURATION: ASKED BUT UNKNOWN
  37. HYDROXYCHLOROQUINE [Suspect]
     Active Substance: HYDROXYCHLOROQUINE
     Indication: Rheumatoid arthritis
     Dosage: FREQUENCY THERAPY DURATION: ASKED BUT UNKNOWN
  38. CYCLOBENZAPRINE [Suspect]
     Active Substance: CYCLOBENZAPRINE
     Indication: Product used for unknown indication
     Dosage: 1 DOSAGE FORM?DOSE FREQUENCY THERAPY DURATION: ASKED BUT UNKNOWN
  39. XELJANZ [Suspect]
     Active Substance: TOFACITINIB CITRATE
     Indication: Rheumatoid arthritis
  40. LEVOMILNACIPRAN [Suspect]
     Active Substance: LEVOMILNACIPRAN
     Indication: Product used for unknown indication
     Dosage: DOSE FREQUENCY THERAPY DURATION: ASKED BUT UNKNOWN
  41. NAPROXEN [Suspect]
     Active Substance: NAPROXEN
     Indication: Rheumatoid arthritis
     Dosage: DOSE FREQUENCY THERAPY DURATION: ASKED BUT UNKNOW
  42. VITAMIN C [Suspect]
     Active Substance: ASCORBIC ACID
     Indication: Product used for unknown indication
  43. BUPRENORPHINE [Suspect]
     Active Substance: BUPRENORPHINE\BUPRENORPHINE HYDROCHLORIDE
     Indication: Product used for unknown indication
     Dosage: DOSE FREQUENCY THERAPY DURATION: ASKED BUT UNKNOWN
  44. SODIUM AUROTIOSULFATE [Suspect]
     Active Substance: SODIUM AUROTIOSULFATE
     Indication: Product used for unknown indication
     Route: 030
  45. ERENUMAB [Suspect]
     Active Substance: ERENUMAB
     Indication: Rheumatoid arthritis
     Dosage: DOSAGE FORM ROUTE OF ADMINISTRATION DOSE FREQUENCY THERAPY DURATION: ASKED BUT UNKNOWN
  46. ERENUMAB [Suspect]
     Active Substance: ERENUMAB
     Indication: Migraine
     Dosage: DOSAGE FORM ROUTE OF ADMINISTRATION DOSE FREQUENCY THERAPY DURATION: ASKED BUT UNKNOWN
  47. TRIAMCINOLONE [Suspect]
     Active Substance: TRIAMCINOLONE
     Indication: Product used for unknown indication
  48. STELARA [Suspect]
     Active Substance: USTEKINUMAB
     Indication: Product used for unknown indication
     Route: 058
  49. ADALIMUMAB [Suspect]
     Active Substance: ADALIMUMAB\ISOPROPYL ALCOHOL
     Indication: Rheumatoid arthritis
     Dosage: DOSE, FREQUENCY, THERAPY DURATION: ASKED BUT UNKNOWN
  50. ADALIMUMAB [Suspect]
     Active Substance: ADALIMUMAB\ISOPROPYL ALCOHOL
     Indication: Rheumatoid arthritis
     Dosage: FREQUENCY, THERAPY DURATION: ASKED BUT UNKNOWN
  51. CELECOXIB [Suspect]
     Active Substance: CELECOXIB
     Indication: Product used for unknown indication
     Dosage: 2 DOSAGE FORM?THERAPY DURATION: ASKED BUT UNKNOWN
  52. CELECOXIB [Suspect]
     Active Substance: CELECOXIB
     Indication: Product used for unknown indication
     Dosage: 1 DOSAGE FORM?THERAPY DURATION: ASKED BUT UNKNOWN
  53. LEFLUNOMIDE [Suspect]
     Active Substance: LEFLUNOMIDE
     Indication: Rheumatoid arthritis
     Dosage: THERAPY DURATION: ASKED BUT UNKNOWN
  54. LEFLUNOMIDE [Suspect]
     Active Substance: LEFLUNOMIDE
     Indication: Rheumatoid arthritis
     Dosage: THERAPY DURATION: ASKED BUT UNKNOWN
  55. RANITIDINE [Suspect]
     Active Substance: RANITIDINE
     Indication: Rheumatoid arthritis
  56. RANITIDINE [Suspect]
     Active Substance: RANITIDINE
     Indication: Rheumatoid arthritis
     Route: 058
  57. RANITIDINE [Suspect]
     Active Substance: RANITIDINE
     Indication: Rheumatoid arthritis
     Route: 042
  58. RAMIPRIL [Suspect]
     Active Substance: RAMIPRIL
     Indication: Product used for unknown indication
     Route: 016
  59. RAMIPRIL [Suspect]
     Active Substance: RAMIPRIL
     Indication: Product used for unknown indication
     Route: 042
  60. METHOTREXATE [Suspect]
     Active Substance: METHOTREXATE
     Indication: Rheumatoid arthritis
     Dosage: THERAPY DURATION: ASKED BUT UNKNOWN
  61. METHOTREXATE [Suspect]
     Active Substance: METHOTREXATE
     Indication: Rheumatoid arthritis
     Dosage: THERAPY DURATION: ASKED BUT UNKNOWN
  62. ATOMOXETINE [Suspect]
     Active Substance: ATOMOXETINE\ATOMOXETINE HYDROCHLORIDE
     Indication: Migraine
     Dosage: 1 DOSAGE FORM?FREQUENCY THERAPY DURATION: ASKED BUT UNKNOWN
  63. ERGOCALCIFEROL [Suspect]
     Active Substance: ERGOCALCIFEROL
     Indication: Product used for unknown indication
     Dosage: DOSAGE FORM ROUTE OF ADMINISTRATION DOSE FREQUENCY THERAPY DURATION: ASKED BUT UNKNOWN
  64. PHENYLEPHRINE HYDROCHLORIDE [Suspect]
     Active Substance: COCOA BUTTER\PHENYLEPHRINE HYDROCHLORIDE\SHARK LIVER OIL
     Indication: Rheumatoid arthritis
  65. ACETAMINOPHEN [Suspect]
     Active Substance: ACETAMINOPHEN
     Indication: Product used for unknown indication
     Dosage: DOSE FREQUENCY THERAPY DURATION: ASKED BUT UNKNOWN
  66. ORENCIA [Suspect]
     Active Substance: ABATACEPT
     Indication: Rheumatoid arthritis
     Dosage: DOSE FREQUENCY THERAPY DURATION: ASKED BUT UNKNOWN
  67. OTEZLA [Suspect]
     Active Substance: APREMILAST
     Indication: Product used for unknown indication
  68. SIMPONI [Suspect]
     Active Substance: GOLIMUMAB
     Indication: Rheumatoid arthritis
     Route: 058
  69. MAGNESIUM [Suspect]
     Active Substance: MAGNESIUM
     Indication: Product used for unknown indication
     Dosage: DOSE FREQUENCY THERAPY DURATION: ASKED BUT UNKNOWN
  70. DOMPERIDONE [Suspect]
     Active Substance: DOMPERIDONE
     Indication: Product used for unknown indication
     Dosage: DOSE FREQUENCY THERAPY DURATION: ASKED BUT UNKNOWN
  71. CIMZIA [Suspect]
     Active Substance: CERTOLIZUMAB PEGOL
     Indication: Rheumatoid arthritis
     Dosage: FREQUENCY THERAPY DURATION: ASKED BUT UNKNOWN
  72. CIMZIA [Suspect]
     Active Substance: CERTOLIZUMAB PEGOL
     Indication: Psoriasis
     Dosage: FREQUENCY THERAPY DURATION: ASKED BUT UNKNOWN
  73. PREDNISONE [Suspect]
     Active Substance: PREDNISONE
     Indication: Rheumatoid arthritis
     Route: 048
  74. PREDNISONE [Suspect]
     Active Substance: PREDNISONE
     Indication: Rheumatoid arthritis
  75. PREDNISONE [Suspect]
     Active Substance: PREDNISONE
     Indication: Rheumatoid arthritis
     Route: 048
  76. AZATHIOPRINE [Suspect]
     Active Substance: AZATHIOPRINE
     Indication: Product used for unknown indication
     Dosage: DOSAGE FORM, ROUTE OF ADMINISTRATION, DOSE, FREQUENCY, THERAPY DURATION: ASKED BUT UNKNOWN
  77. FOLIC ACID [Suspect]
     Active Substance: FOLIC ACID
     Indication: Rheumatoid arthritis
     Dosage: FREQUENCY THERAPY DURATION: ASKED BUT UNKNOWN
  78. FOLIC ACID [Suspect]
     Active Substance: FOLIC ACID
     Indication: Rheumatoid arthritis
     Dosage: 0.5 MG?FREQUENCY THERAPY DURATION: ASKED BUT UNKNOWN
  79. FOLIC ACID [Suspect]
     Active Substance: FOLIC ACID
     Indication: Rheumatoid arthritis
     Dosage: FREQUENCY THERAPY DURATION: ASKED BUT UNKNOWN
     Route: 048
  80. FOLIC ACID [Suspect]
     Active Substance: FOLIC ACID
     Indication: Rheumatoid arthritis
     Dosage: FREQUENCY THERAPY DURATION: ASKED BUT UNKNOWN
  81. PANTOPRAZOLE [Suspect]
     Active Substance: PANTOPRAZOLE
     Indication: Product used for unknown indication
  82. CALCIUM ASCORBATE [Suspect]
     Active Substance: CALCIUM ASCORBATE
     Indication: Product used for unknown indication
     Dosage: DOSE FREQUENCY THERAPY DURATION: ASKED BUT UNKNOWN
  83. BOTULINUM TOXIN TYPE A [Suspect]
     Active Substance: BOTULINUM TOXIN TYPE A
     Indication: Product used for unknown indication
     Dosage: DOSE FREQUENCY THERAPY DURATION: ASKED BUT UNKNOWN
  84. BOTULINUM TOXIN TYPE A [Suspect]
     Active Substance: BOTULINUM TOXIN TYPE A
     Indication: Product used for unknown indication
     Dosage: DOSE FREQUENCY THERAPY DURATION: ASKED BUT UNKNOWN
     Route: 030
  85. METHYLPREDNISOLONE [Suspect]
     Active Substance: METHYLPREDNISOLONE
     Indication: Product used for unknown indication
     Dosage: C
  86. HYDROMORPHONE [Suspect]
     Active Substance: HYDROMORPHONE
     Indication: Rheumatoid arthritis
     Dosage: DOSE FREQUENCY THERAPY DURATION: ASKED BUT UNKNOWN
  87. OXYCODONE [Suspect]
     Active Substance: OXYCODONE\OXYCODONE HYDROCHLORIDE
     Indication: Product used for unknown indication
  88. TRETINOIN [Suspect]
     Active Substance: TRETINOIN
     Indication: Product used for unknown indication
     Dosage: DOSE FREQUENCY THERAPY DURATION: ASKED BUT UNKNOWN
  89. LAMOTRIGINE [Suspect]
     Active Substance: LAMOTRIGINE
     Indication: Product used for unknown indication
     Dosage: FREQUENCY THERAPY DURATION: ASKED BUT UNKNOWN
     Route: 048
  90. LAMOTRIGINE [Suspect]
     Active Substance: LAMOTRIGINE
     Indication: Product used for unknown indication
     Dosage: FREQUENCY THERAPY DURATION: ASKED BUT UNKNOWN
     Route: 048
  91. ERELZI [Suspect]
     Active Substance: ETANERCEPT-SZZS
     Indication: Rheumatoid arthritis
     Dosage: DOSE FREQUENCY THERAPY DURATION: ASKED BUT UNKNOWN
  92. PHTHALYLSULFATHIAZOLE [Suspect]
     Active Substance: PHTHALYLSULFATHIAZOLE
     Indication: Rheumatoid arthritis
  93. PHTHALYLSULFATHIAZOLE [Suspect]
     Active Substance: PHTHALYLSULFATHIAZOLE
     Indication: Rheumatoid arthritis
  94. MINOCYCLINE [Suspect]
     Active Substance: MINOCYCLINE HYDROCHLORIDE
     Indication: Product used for unknown indication
     Dosage: DOSAGE FORM ROUTE OF?ADMINISTRATION DOSE FREQUENCY THERAPY DURATION ASKED BUT UNKNOWN
  95. FLUTICASONE PROPIONATE [Suspect]
     Active Substance: FLUTICASONE PROPIONATE
     Indication: Product used for unknown indication
     Dosage: DOSE FREQUENCY THERAPY DURATION: ASKED BUT UNKNOWN
  96. DICLOFENAC [Suspect]
     Active Substance: DICLOFENAC
     Indication: Product used for unknown indication
     Dosage: DOSE FREQUENCY THERAPY DURATION: ASKED BUT UNKNOWN
  97. TOPIRAMATE [Suspect]
     Active Substance: TOPIRAMATE
     Indication: Migraine
  98. TOPIRAMATE [Suspect]
     Active Substance: TOPIRAMATE
     Indication: Migraine
  99. DESOXIMETASONE [Suspect]
     Active Substance: DESOXIMETASONE
     Indication: Rheumatoid arthritis
     Dosage: DOSE, FREQUENCY THERAPY DURATION: ASKED BUT UNKNOWN
     Route: 058
  100. DESOXIMETASONE [Suspect]
     Active Substance: DESOXIMETASONE
     Indication: Rheumatoid arthritis
     Dosage: FREQUENCY THERAPY DURATION: ASKED BUT UNKNOWN
  101. DESOXIMETASONE [Suspect]
     Active Substance: DESOXIMETASONE
     Indication: Rheumatoid arthritis
     Dosage: FREQUENCY THERAPY DURATION: ASKED BUT UNKNOWN
     Route: 048
  102. MYRBETRIQ [Suspect]
     Active Substance: MIRABEGRON
     Indication: Product used for unknown indication
     Dosage: 1 DOSAGE FORM?DOSE FREQUENCY THERAPY DURATION: ASKED BUT UNKNOWN
     Route: 048
  103. ACTEMRA [Suspect]
     Active Substance: TOCILIZUMAB
     Indication: Rheumatoid arthritis
     Dosage: FREQUENCY, THERAPY DURATION: ASKED BUT UNKNOWN
     Route: 042
  104. ACTEMRA [Suspect]
     Active Substance: TOCILIZUMAB
     Indication: Rheumatoid arthritis
     Dosage: FREQUENCY, THERAPY DURATION: ASKED BUT UNKNOWN
     Route: 042
  105. ACTEMRA [Suspect]
     Active Substance: TOCILIZUMAB
     Indication: Rheumatoid arthritis
     Dosage: 3011.2 MG?FREQUENCY, THERAPY DURATION: ASKED BUT UNKNOWN
     Route: 042
  106. ACTEMRA [Suspect]
     Active Substance: TOCILIZUMAB
     Indication: Rheumatoid arthritis
     Dosage: FREQUENCY, THERAPY DURATION: ASKED BUT UNKNOWN
  107. ACTEMRA [Suspect]
     Active Substance: TOCILIZUMAB
     Indication: Rheumatoid arthritis
     Dosage: DOSE, FREQUENCY, THERAPY DURATION: ASKED BUT UNKNOWN
     Route: 058
  108. CHOLECALCIFEROL [Suspect]
     Active Substance: CHOLECALCIFEROL
     Indication: Product used for unknown indication
     Dosage: DOSE FREQUENCY THERAPY DURATION: ASKED BUT UNKNOWN
  109. RITUXIMAB [Suspect]
     Active Substance: RITUXIMAB
     Indication: Rheumatoid arthritis
     Dosage: DOSE: ASKED BUT UNKNOWN
     Route: 043
  110. RITUXIMAB [Suspect]
     Active Substance: RITUXIMAB
     Indication: Rheumatoid arthritis
     Dosage: (DOSE: ASKED BUT UNKNOWN)
     Route: 042
  111. RITUXIMAB [Suspect]
     Active Substance: RITUXIMAB
     Indication: Rheumatoid arthritis
     Dosage: (DOSE: ASKED BUT UNKNOWN)
     Route: 042
  112. RITUXIMAB [Suspect]
     Active Substance: RITUXIMAB
     Indication: Rheumatoid arthritis
     Dosage: (DOSE: ASKED BUT UNKNOWN)
     Route: 058
  113. RITUXIMAB [Suspect]
     Active Substance: RITUXIMAB
     Indication: Rheumatoid arthritis

REACTIONS (98)
  - Abdominal discomfort [Fatal]
  - Peripheral venous disease [Unknown]
  - Product quality issue [Unknown]
  - Helicobacter infection [Fatal]
  - Psoriatic arthropathy [Unknown]
  - Therapeutic product effect incomplete [Unknown]
  - Drug intolerance [Unknown]
  - Swelling [Unknown]
  - Breast cancer stage III [Fatal]
  - Alopecia [Fatal]
  - Epilepsy [Fatal]
  - Contraindicated product administered [Fatal]
  - Drug ineffective [Fatal]
  - Wound infection [Unknown]
  - Product use in unapproved indication [Unknown]
  - Obesity [Unknown]
  - Paraesthesia [Unknown]
  - Sleep disorder [Unknown]
  - Irritable bowel syndrome [Unknown]
  - Nausea [Unknown]
  - Duodenal ulcer perforation [Fatal]
  - Nail disorder [Unknown]
  - Synovitis [Unknown]
  - Back injury [Fatal]
  - Wound [Unknown]
  - Gastrooesophageal reflux disease [Fatal]
  - Arthropathy [Fatal]
  - Inflammation [Unknown]
  - Fibromyalgia [Fatal]
  - Intentional product use issue [Unknown]
  - Memory impairment [Unknown]
  - Glossodynia [Fatal]
  - Product use issue [Unknown]
  - Urticaria [Unknown]
  - Bursitis [Fatal]
  - Facet joint syndrome [Fatal]
  - Pain [Unknown]
  - Asthenia [Fatal]
  - Hypoaesthesia [Unknown]
  - Rheumatoid arthritis [Unknown]
  - Abdominal pain upper [Fatal]
  - Impaired healing [Unknown]
  - Infusion site reaction [Unknown]
  - Blood cholesterol increased [Fatal]
  - Weight increased [Unknown]
  - Muscle spasms [Unknown]
  - Liver injury [Fatal]
  - Muscular weakness [Unknown]
  - Pain in extremity [Unknown]
  - Folliculitis [Fatal]
  - Injury [Unknown]
  - Neck pain [Unknown]
  - Lung disorder [Unknown]
  - Diarrhoea [Fatal]
  - Pericarditis [Unknown]
  - Treatment failure [Unknown]
  - Onychomadesis [Unknown]
  - Drug hypersensitivity [Fatal]
  - Type 2 diabetes mellitus [Unknown]
  - Osteoarthritis [Unknown]
  - General physical health deterioration [Fatal]
  - Peripheral swelling [Unknown]
  - Infusion related reaction [Unknown]
  - Anti-cyclic citrullinated peptide antibody positive [Fatal]
  - Blister [Fatal]
  - Pneumonia [Unknown]
  - Pemphigus [Unknown]
  - Nasopharyngitis [Unknown]
  - Mobility decreased [Unknown]
  - Lower respiratory tract infection [Unknown]
  - Stomatitis [Unknown]
  - Hypertension [Unknown]
  - Vomiting [Unknown]
  - Rash [Unknown]
  - Joint range of motion decreased [Unknown]
  - Liver function test increased [Unknown]
  - Therapeutic product effect decreased [Unknown]
  - Maternal exposure during pregnancy [Unknown]
  - Depression [Fatal]
  - Dizziness [Fatal]
  - Gait inability [Fatal]
  - Dry mouth [Unknown]
  - Night sweats [Unknown]
  - Confusional state [Fatal]
  - Live birth [Unknown]
  - Hepatic enzyme increased [Unknown]
  - Hand deformity [Fatal]
  - Hypercholesterolaemia [Unknown]
  - Muscle injury [Unknown]
  - C-reactive protein increased [Fatal]
  - Systemic lupus erythematosus [Fatal]
  - Taste disorder [Unknown]
  - Lip dry [Unknown]
  - Joint swelling [Unknown]
  - Rheumatic fever [Unknown]
  - Blepharospasm [Fatal]
  - Musculoskeletal pain [Unknown]
  - Arthralgia [Fatal]
